FAERS Safety Report 16963592 (Version 1)
Quarter: 2019Q4

REPORT INFORMATION
  Report Type: Spontaneous
  Country: IT (occurrence: IT)
  Receive Date: 20191025
  Receipt Date: 20191025
  Transmission Date: 20200122
  Serious: Yes (Hospitalization)
  Sender: FDA-Public Use
  Company Number: IT-LUNDBECK-DKLU3006541

PATIENT
  Age: 72 Year
  Sex: Female

DRUGS (2)
  1. FRISIUM [Suspect]
     Active Substance: CLOBAZAM
     Indication: PRODUCT ADMINISTRATION ERROR
     Route: 048
     Dates: start: 20190930, end: 20190930
  2. CLOZAPINE. [Suspect]
     Active Substance: CLOZAPINE
     Indication: PRODUCT ADMINISTRATION ERROR
     Route: 048
     Dates: start: 20190930, end: 20190930

REACTIONS (3)
  - Sopor [Unknown]
  - Medication error [Unknown]
  - Vomiting [Unknown]

NARRATIVE: CASE EVENT DATE: 20190930
